FAERS Safety Report 15400671 (Version 1)
Quarter: 2018Q3

REPORT INFORMATION
  Report Type: Report from Study
  Country: US (occurrence: US)
  Receive Date: 20180919
  Receipt Date: 20180919
  Transmission Date: 20181010
  Serious: No
  Sender: FDA-Public Use
  Company Number: PHEH2018US038094

PATIENT
  Age: 12 Year
  Sex: Female

DRUGS (2)
  1. AFINITOR [Suspect]
     Active Substance: EVEROLIMUS
     Indication: TUBEROUS SCLEROSIS COMPLEX
  2. AFINITOR [Suspect]
     Active Substance: EVEROLIMUS
     Indication: CHEMOTHERAPY MULTIPLE AGENTS SYSTEMIC
     Dosage: 7.5 MG, QD
     Route: 048
     Dates: start: 20110412

REACTIONS (5)
  - Acne [Unknown]
  - Pruritus [Unknown]
  - Menstruation irregular [Recovered/Resolved]
  - Headache [Unknown]
  - Seborrhoea [Unknown]

NARRATIVE: CASE EVENT DATE: 20180323
